FAERS Safety Report 5946519-3 (Version None)
Quarter: 2008Q4

REPORT INFORMATION
  Report Type: 
  Country: None (occurrence: None)
  Receive Date: 20081110
  Receipt Date: 20081028
  Transmission Date: 20090506
  Serious: Yes (Hospitalization)
  Sender: FDA-Public Use
  Company Number: B0544057A

PATIENT
  Age: 68 Year
  Sex: Female

DRUGS (9)
  1. ALKERAN [Suspect]
     Indication: MULTIPLE MYELOMA
     Dosage: 1MGK PER DAY
     Route: 065
     Dates: start: 20080601, end: 20081003
  2. CORTANCYL [Suspect]
     Indication: MULTIPLE MYELOMA
     Dosage: 2MGK PER DAY
     Route: 065
     Dates: start: 20080601, end: 20081003
  3. THALIDOMIDE [Suspect]
     Indication: MULTIPLE MYELOMA
     Route: 065
     Dates: start: 20080601, end: 20081003
  4. IMOVANE [Concomitant]
     Route: 065
  5. ATARAX [Concomitant]
     Route: 065
  6. DI ANTALVIC [Concomitant]
     Route: 065
  7. HEXAQUINE [Concomitant]
     Route: 065
  8. AMLOD [Concomitant]
  9. NEXIUM [Concomitant]

REACTIONS (1)
  - REFRACTORY ANAEMIA WITH AN EXCESS OF BLASTS [None]
